FAERS Safety Report 9961897 (Version 1)
Quarter: 2014Q1

REPORT INFORMATION
  Report Type: Report from Study
  Country: US (occurrence: US)
  Receive Date: 20140305
  Receipt Date: 20140305
  Transmission Date: 20141002
  Serious: Yes (Other)
  Sender: FDA-Public Use
  Company Number: US-ABBVIE-13P-163-1114552-00

PATIENT
  Age: 49 Year
  Sex: Male

DRUGS (8)
  1. HUMIRA [Suspect]
     Indication: CROHN^S DISEASE
     Dates: start: 20130220, end: 20130615
  2. IMURAN [Suspect]
     Indication: PRODUCT USED FOR UNKNOWN INDICATION
  3. CELEXA [Concomitant]
     Indication: DEPRESSION
  4. XANAX [Concomitant]
     Indication: STRESS
  5. XANAX [Concomitant]
     Indication: SLEEP DISORDER
  6. LORTAB [Concomitant]
     Indication: BACK PAIN
  7. LORTAB [Concomitant]
     Indication: ARTHRALGIA
  8. LORTAB [Concomitant]
     Indication: ABDOMINAL PAIN

REACTIONS (5)
  - Skin cancer [Recovering/Resolving]
  - Impaired healing [Recovering/Resolving]
  - Oral fungal infection [Recovering/Resolving]
  - Fungal skin infection [Recovering/Resolving]
  - Erythema [Recovering/Resolving]
